FAERS Safety Report 17805590 (Version 3)
Quarter: 2022Q2

REPORT INFORMATION
  Report Type: Spontaneous
  Country: CA (occurrence: CA)
  Receive Date: 20200520
  Receipt Date: 20220412
  Transmission Date: 20220721
  Serious: Yes (Hospitalization)
  Sender: FDA-Public Use
  Company Number: CA-AUROBINDO-AUR-APL-2020-025062

PATIENT
  Age: 15 Year
  Sex: Female
  Weight: 57 kg

DRUGS (22)
  1. MELPHALAN [Suspect]
     Active Substance: MELPHALAN
     Indication: Hodgkin^s disease
     Dosage: 60 MG/M2, ONCE A DAY
     Route: 042
     Dates: start: 20171215
  2. BUSULFEX [Suspect]
     Active Substance: BUSULFAN
     Indication: Hodgkin^s disease
     Dosage: 110 MG/M2, ONCE A DAY
     Route: 042
  3. BUSULFEX [Suspect]
     Active Substance: BUSULFAN
     Dosage: 110 MG/M2, ONCE A DAY
     Route: 042
  4. GEMCITABINE [Suspect]
     Active Substance: GEMCITABINE
     Indication: Hodgkin^s disease
     Dosage: 2775 MG/M2, ONCE A DAY
     Route: 042
     Dates: start: 20171215, end: 20171215
  5. GEMCITABINE [Suspect]
     Active Substance: GEMCITABINE
     Dosage: 2775 MG/M2, ONCE A DAY
     Route: 042
     Dates: start: 20171210
  6. GEMCITABINE [Suspect]
     Active Substance: GEMCITABINE
     Dosage: 1000 MG/M2, ONCE A DAY
     Route: 042
     Dates: start: 20170828, end: 20171215
  7. GEMCITABINE [Suspect]
     Active Substance: GEMCITABINE
     Dosage: 1000 MG/M2, ONCE A DAY
     Route: 042
     Dates: start: 20170927
  8. GEMCITABINE [Suspect]
     Active Substance: GEMCITABINE
     Dosage: 1000 MG/M2, ONCE A DAY
     Route: 042
     Dates: start: 20170920
  9. GEMCITABINE [Suspect]
     Active Substance: GEMCITABINE
     Dosage: 1000 MG/M2, ONCE A DAY
     Route: 042
     Dates: start: 20170905
  10. BRENTUXIMAB VEDOTIN [Concomitant]
     Active Substance: BRENTUXIMAB VEDOTIN
     Indication: Product used for unknown indication
     Dosage: UNK
     Route: 042
     Dates: start: 20171109, end: 20180704
  11. DEXAMETHASONE [Concomitant]
     Active Substance: DEXAMETHASONE
     Indication: Product used for unknown indication
     Dosage: UNK
     Route: 065
  12. DEXAMETHASONE [Concomitant]
     Active Substance: DEXAMETHASONE
     Dosage: UNK
     Route: 065
     Dates: start: 20170828, end: 20171229
  13. VINCRISTINE SULFATE [Concomitant]
     Active Substance: VINCRISTINE SULFATE
     Indication: Product used for unknown indication
     Dosage: 1.4 MILLIGRAM/SQ. METER
     Route: 042
     Dates: start: 20170123, end: 20170428
  14. CYCLOPHOSPHAMIDE [Concomitant]
     Active Substance: CYCLOPHOSPHAMIDE
     Indication: Product used for unknown indication
     Dosage: 600 MILLIGRAM/SQ. METER
     Route: 042
     Dates: start: 20170123, end: 20170420
  15. VINORELBINE [Concomitant]
     Active Substance: VINORELBINE TARTRATE
     Indication: Product used for unknown indication
     Dosage: 25 MILLIGRAM/SQ. METER
     Route: 065
     Dates: start: 20170828, end: 20170927
  16. IFOSFAMIDE [Concomitant]
     Active Substance: IFOSFAMIDE
     Indication: Product used for unknown indication
     Dosage: 1800-3000 MG/M2 ; FREQUENCY-AS PER PROTOCOL
     Route: 042
     Dates: start: 20171018
  17. DOXORUBICIN HYDROCHLORIDE [Concomitant]
     Active Substance: DOXORUBICIN HYDROCHLORIDE
     Indication: Product used for unknown indication
     Dosage: 25 MILLIGRAM/SQ. METER
     Route: 042
     Dates: start: 20170123
  18. PREDNISONE [Concomitant]
     Active Substance: PREDNISONE
     Indication: Product used for unknown indication
     Dosage: 20 MILLIGRAM/SQ. METER
     Route: 048
     Dates: start: 20170123
  19. ETOPOSIDE [Concomitant]
     Active Substance: ETOPOSIDE
     Indication: Product used for unknown indication
     Dosage: 125 MILLIGRAM/SQ. METER
     Route: 042
     Dates: start: 20170123
  20. BUSULFAN [Suspect]
     Active Substance: BUSULFAN
     Indication: Hodgkin^s disease
     Dosage: 110 MILLIGRAM/SQ. METER
     Route: 042
     Dates: start: 20171210, end: 20171213
  21. CARBOPLATIN [Concomitant]
     Active Substance: CARBOPLATIN
     Indication: Product used for unknown indication
     Dosage: 400-500 MG/M2; FREQUENCY-AS PER PROTOCOL
     Route: 042
     Dates: start: 20171018
  22. BLEOMYCIN [Concomitant]
     Active Substance: BLEOMYCIN SULFATE
     Indication: Product used for unknown indication
     Dosage: 5-10 U/M2;FREQUENCY-AS PER PROTOCOL
     Route: 042
     Dates: start: 20170123

REACTIONS (7)
  - Erythema [Recovered/Resolved]
  - Condition aggravated [Recovered/Resolved]
  - Mucosal inflammation [Recovered/Resolved]
  - Product use in unapproved indication [Recovered/Resolved]
  - Off label use [Recovered/Resolved]
  - Neoplasm progression [Recovered/Resolved]
  - Dysphagia [Recovered/Resolved]

NARRATIVE: CASE EVENT DATE: 20171214
